FAERS Safety Report 21785895 (Version 1)
Quarter: 2022Q4

REPORT INFORMATION
  Report Type: Spontaneous
  Country: US (occurrence: US)
  Receive Date: 20221227
  Receipt Date: 20221227
  Transmission Date: 20230112
  Serious: Yes (Other)
  Sender: FDA-Public Use
  Company Number: US-STRIDES ARCOLAB LIMITED-2022SP012525

PATIENT
  Age: 29 Year
  Sex: Female

DRUGS (8)
  1. ACETAZOLAMIDE [Suspect]
     Active Substance: ACETAZOLAMIDE
     Indication: Intraocular pressure increased
     Dosage: UNK
     Route: 048
  2. AZATHIOPRINE [Suspect]
     Active Substance: AZATHIOPRINE
     Indication: Cystoid macular oedema
     Dosage: UNK (INITIAL DOSAGE NOT STATED)
     Route: 065
  3. AZATHIOPRINE [Suspect]
     Active Substance: AZATHIOPRINE
     Dosage: 225 MILLIGRAM PER DAY (DOSE TITRATED)
     Route: 065
  4. TRIAMCINOLONE ACETONIDE [Suspect]
     Active Substance: TRIAMCINOLONE ACETONIDE
     Indication: Cystoid macular oedema
     Dosage: UNK (RECIEVED MULTIPLE INJECTIONS)
     Route: 031
  5. TRIAMCINOLONE ACETONIDE [Suspect]
     Active Substance: TRIAMCINOLONE ACETONIDE
     Dosage: 2 MILLIGRAM (2MG/0.05 ML; INTRAVITREAL SUSPENSION INJECTION )
  6. PREDNISOLONE ACETATE [Suspect]
     Active Substance: PREDNISOLONE ACETATE
     Indication: Cystoid macular oedema
     Dosage: UNK
     Route: 061
  7. KETOROLAC [Suspect]
     Active Substance: KETOROLAC TROMETHAMINE
     Indication: Cystoid macular oedema
     Dosage: UNK
     Route: 065
  8. ADALIMUMAB [Suspect]
     Active Substance: ADALIMUMAB
     Indication: Cystoid macular oedema
     Dosage: 40 MILLIGRAM EVERY 2 WEEKS
     Route: 058

REACTIONS (2)
  - Drug ineffective [Unknown]
  - Off label use [Unknown]
